FAERS Safety Report 5268585-3 (Version None)
Quarter: 2007Q1

REPORT INFORMATION
  Report Type: 
  Country: None (occurrence: None)
  Receive Date: 20070315
  Receipt Date: 20070315
  Transmission Date: 20070707
  Serious: Yes (Other)
  Sender: FDA-Public Use
  Company Number: None

PATIENT
  Sex: Female
  Weight: 77.5651 kg

DRUGS (1)
  1. BUPROPION HCL [Suspect]
     Indication: DEPRESSION
     Dosage: ONE TIME PO QD  LAST SEEN 2/9/07
     Route: 048
     Dates: start: 20061227

REACTIONS (3)
  - ANXIETY [None]
  - TREMOR [None]
  - WEIGHT INCREASED [None]
